FAERS Safety Report 22116771 (Version 1)
Quarter: 2023Q1

REPORT INFORMATION
  Report Type: Spontaneous
  Country: US (occurrence: US)
  Receive Date: 20230320
  Receipt Date: 20230320
  Transmission Date: 20230417
  Serious: No
  Sender: FDA-Public Use
  Company Number: US-Calliditas-2023CAL00249

PATIENT
  Age: 36 Year
  Sex: Female

DRUGS (1)
  1. TARPEYO [Suspect]
     Active Substance: BUDESONIDE
     Indication: Chronic kidney disease
     Dosage: 16 MG (4 MG CAPSULES) ONCE DAILY
     Route: 048
     Dates: start: 20221126

REACTIONS (8)
  - Productive cough [Unknown]
  - Peripheral swelling [Unknown]
  - Muscle spasms [Unknown]
  - Generalised oedema [Unknown]
  - Muscle spasms [Unknown]
  - Off label use [Unknown]
  - Bacterial infection [Unknown]
  - Therapeutic response unexpected [Unknown]
